FAERS Safety Report 6215326-9 (Version None)
Quarter: 2009Q2

REPORT INFORMATION
  Report Type: 
  Country: None (occurrence: None)
  Receive Date: 20090604
  Receipt Date: 20090528
  Transmission Date: 20091009
  Serious: Yes (Death, Hospitalization, Other)
  Sender: FDA-Public Use
  Company Number: PHHY2009IN20762

PATIENT
  Age: 48 Year
  Sex: Female

DRUGS (8)
  1. CYCLOSPORINE [Suspect]
     Indication: RENAL TRANSPLANT
  2. AZATHIOPRINE [Suspect]
     Indication: RENAL TRANSPLANT
  3. PREDNISOLONE [Suspect]
     Indication: RENAL TRANSPLANT
  4. DACLIZUMAB [Suspect]
     Indication: RENAL TRANSPLANT
  5. MYCOPHENOLATE MOFETIL [Concomitant]
     Indication: TRANSPLANT REJECTION
  6. SIROLIMUS [Concomitant]
  7. ANTI-THYMOCYTE GLOBULIN NOS [Concomitant]
     Dosage: 500 MG, UNK
  8. VALGANCICLOVIR HCL [Concomitant]
     Indication: ANTIVIRAL PROPHYLAXIS

REACTIONS (11)
  - ANURIA [None]
  - DIABETES MELLITUS [None]
  - EPISTAXIS [None]
  - KIDNEY TRANSPLANT REJECTION [None]
  - OEDEMA MUCOSAL [None]
  - OLIGURIA [None]
  - PYREXIA [None]
  - RENAL IMPAIRMENT [None]
  - SINUS CONGESTION [None]
  - SINUS DISORDER [None]
  - ZYGOMYCOSIS [None]
